FAERS Safety Report 8340141 (Version 4)
Quarter: 2012Q4

REPORT INFORMATION
  Report Type: 
  Country: US (occurrence: US)
  Receive Date: 20120117
  Receipt Date: 20120904
  Transmission Date: 20130627
  Serious: Yes (Hospitalization, Other)
  Sender: FDA-Public Use
  Company Number: US-US-EMD SERONO, INC.-7004207

PATIENT
  Age: 56 None
  Sex: Female
  Weight: 63 kg

DRUGS (5)
  1. REBIF [Suspect]
     Indication: MULTIPLE SCLEROSIS
     Route: 058
     Dates: start: 20050401, end: 20120109
  2. REBIF [Suspect]
  3. ALEVE [Concomitant]
     Indication: PREMEDICATION
  4. CALCIUM [Concomitant]
     Indication: BONE DISORDER
  5. MAGNESIUM [Concomitant]
     Indication: BONE DISORDER

REACTIONS (14)
  - Thoracic vertebral fracture [Recovering/Resolving]
  - Rib fracture [Recovering/Resolving]
  - Fall [Recovering/Resolving]
  - Cataract [Recovered/Resolved]
  - Intervertebral disc protrusion [Recovering/Resolving]
  - Tooth injury [Recovering/Resolving]
  - Blood test abnormal [Unknown]
  - Head injury [Recovering/Resolving]
  - Loss of consciousness [Not Recovered/Not Resolved]
  - Palpitations [Unknown]
  - Disorientation [Recovering/Resolving]
  - Memory impairment [Unknown]
  - Swelling [Recovering/Resolving]
  - Influenza like illness [Not Recovered/Not Resolved]
